FAERS Safety Report 12995088 (Version 1)
Quarter: 2016Q4

REPORT INFORMATION
  Report Type: Spontaneous
  Country: BR (occurrence: BR)
  Receive Date: 20161202
  Receipt Date: 20161202
  Transmission Date: 20170207
  Serious: Yes (Hospitalization, Other)
  Sender: FDA-Public Use
  Company Number: BR-JNJFOC-20161128441

PATIENT
  Age: 47 Year
  Sex: Male

DRUGS (6)
  1. STANGLIT [Concomitant]
     Active Substance: PIOGLITAZONE HYDROCHLORIDE
     Route: 065
  2. ACETYLSALICYLIC ACID [Concomitant]
     Active Substance: ASPIRIN
     Route: 065
  3. TREZOR [Concomitant]
     Active Substance: ROSUVASTATIN CALCIUM
     Route: 065
  4. INVOKANA [Suspect]
     Active Substance: CANAGLIFLOZIN
     Indication: DIABETES MELLITUS
     Route: 065
     Dates: start: 20161017
  5. INSULIN [Concomitant]
     Active Substance: INSULIN NOS
     Route: 065
  6. MERITOR [Concomitant]
     Active Substance: GLIMEPIRIDE\METFORMIN
     Route: 065

REACTIONS (3)
  - Toe amputation [Unknown]
  - Angioplasty [Unknown]
  - Extremity necrosis [Unknown]

NARRATIVE: CASE EVENT DATE: 20161024
